FAERS Safety Report 8076405-7 (Version None)
Quarter: 2012Q1

REPORT INFORMATION
  Report Type: 
  Country: None (occurrence: None)
  Receive Date: 20120127
  Receipt Date: 20120127
  Transmission Date: 20120608
  Serious: Yes (Other)
  Sender: FDA-Public Use
  Company Number: None

PATIENT
  Age: 67 Year
  Sex: Female
  Weight: 68.038 kg

DRUGS (2)
  1. LIPITOR -GENERIC- [Suspect]
     Indication: BLOOD CHOLESTEROL
     Dosage: 10 MG
     Route: 048
     Dates: start: 20090601, end: 20090709
  2. PRAVASTATIN [Concomitant]
     Indication: BLOOD CHOLESTEROL
     Dosage: 20  MG
     Route: 048
     Dates: start: 20100610, end: 20100710

REACTIONS (9)
  - DISTURBANCE IN ATTENTION [None]
  - SLEEP DISORDER [None]
  - MYALGIA [None]
  - PAIN [None]
  - TENDON DISORDER [None]
  - ASTHENIA [None]
  - BLOOD CREATINE INCREASED [None]
  - INFLAMMATION [None]
  - BURSITIS [None]
